FAERS Safety Report 8784869 (Version 1)
Quarter: 2012Q4

REPORT INFORMATION
  Report Type: 
  Country: GB (occurrence: GB)
  Receive Date: 20120914
  Receipt Date: 20120914
  Transmission Date: 20130627
  Serious: Yes (Life-Threatening)
  Sender: FDA-Public Use
  Company Number: GB-UCBSA-065297

PATIENT
  Age: 56 Year
  Sex: Female

DRUGS (8)
  1. CIMZIA [Suspect]
     Indication: RHEUMATOID ARTHRITIS
     Route: 058
     Dates: start: 20100709, end: 20100908
  2. ENBREL [Suspect]
     Indication: RHEUMATOID ARTHRITIS
     Dosage: WEEKLY
     Route: 058
     Dates: start: 20061209, end: 20100614
  3. METHOTREXATE [Concomitant]
     Indication: RHEUMATOID ARTHRITIS
     Route: 048
     Dates: start: 20000202
  4. TACROLIMUS [Concomitant]
     Indication: RHEUMATOID ARTHRITIS
     Dosage: DAILY :3MG
     Route: 048
     Dates: start: 20101102
  5. FOLIC ACID [Concomitant]
     Indication: RHEUMATOID ARTHRITIS
     Route: 048
  6. CO-CODAMOL [Concomitant]
     Indication: ARTHRALGIA
     Dosage: 8/500 1-2 TABS  QID
     Route: 048
  7. LANSOPRAZOLE [Concomitant]
     Indication: GASTROOESOPHAGEAL REFLUX DISEASE
     Route: 048
  8. CALCICHEW-D3 [Concomitant]
     Indication: OSTEOPOROSIS
     Dosage: 2 TABS
     Route: 048

REACTIONS (4)
  - Lung adenocarcinoma [Unknown]
  - Metastasis [Unknown]
  - Lymphadenopathy [Unknown]
  - Drug ineffective [Recovered/Resolved]
